FAERS Safety Report 6403016-9 (Version None)
Quarter: 2009Q4

REPORT INFORMATION
  Report Type: 
  Country: None (occurrence: None)
  Receive Date: 20091016
  Receipt Date: 20091006
  Transmission Date: 20100525
  Serious: Yes (Other)
  Sender: FDA-Public Use
  Company Number: US-ABBOTT-09P-163-0601569-00

PATIENT
  Sex: Female
  Weight: 49.032 kg

DRUGS (8)
  1. VICODIN [Suspect]
     Indication: MIGRAINE
     Dates: start: 20070101
  2. VICODIN [Suspect]
     Indication: POSTOPERATIVE ANALGESIA
     Dates: start: 20080101
  3. RECLAST [Concomitant]
     Indication: OSTEOPOROSIS
     Dates: start: 20090922, end: 20090922
  4. DEPAKOTE [Concomitant]
     Indication: MIGRAINE PROPHYLAXIS
  5. PREMPRO [Concomitant]
     Indication: MENOPAUSE
  6. CALCIUM [Concomitant]
     Indication: DRUG USE FOR UNKNOWN INDICATION
  7. ASCORBIC ACID [Concomitant]
     Indication: DRUG USE FOR UNKNOWN INDICATION
  8. MAXALT [Concomitant]
     Indication: MIGRAINE

REACTIONS (8)
  - CHEST PAIN [None]
  - DIZZINESS [None]
  - FEELING ABNORMAL [None]
  - LIVER FUNCTION TEST ABNORMAL [None]
  - MALAISE [None]
  - NAUSEA [None]
  - OEDEMA PERIPHERAL [None]
  - VOMITING [None]
